FAERS Safety Report 7151909-X (Version None)
Quarter: 2010Q4

REPORT INFORMATION
  Report Type: 
  Country: None (occurrence: None)
  Receive Date: 20101210
  Receipt Date: 20100826
  Transmission Date: 20110411
  Serious: Yes (Death)
  Sender: FDA-Public Use
  Company Number: GB-GENENTECH-299045

PATIENT
  Sex: Male

DRUGS (1)
  1. LUCENTIS [Suspect]
     Indication: PRODUCT USED FOR UNKNOWN INDICATION
     Route: 031

REACTIONS (14)
  - AMBLYOPIA [None]
  - ATRIAL FIBRILLATION [None]
  - CATARACT [None]
  - DEATH [None]
  - FALL [None]
  - GENERAL PHYSICAL HEALTH DETERIORATION [None]
  - GLAUCOMA [None]
  - INGUINAL HERNIA [None]
  - ISCHAEMIC ULCER [None]
  - OSTEOARTHRITIS [None]
  - OSTEOPOROSIS [None]
  - PERIPHERAL VASCULAR DISORDER [None]
  - SICK SINUS SYNDROME [None]
  - VASCULAR DEMENTIA [None]
